FAERS Safety Report 14543560 (Version 1)
Quarter: 2018Q1

REPORT INFORMATION
  Report Type: Spontaneous
  Country: CA (occurrence: CA)
  Receive Date: 20180216
  Receipt Date: 20180216
  Transmission Date: 20180509
  Serious: Yes (Hospitalization)
  Sender: FDA-Public Use
  Company Number: CA-TEVA-2018-CA-857846

PATIENT
  Age: 66 Year
  Sex: Female

DRUGS (12)
  1. CANDESARTAN. [Concomitant]
     Active Substance: CANDESARTAN
  2. FELODIPINE. [Concomitant]
     Active Substance: FELODIPINE
  3. PINAVERIUM BROMIDE [Concomitant]
     Active Substance: PINAVERIUM BROMIDE
  4. YERVOY FOR I.V. INFUSION ONLY. 50MG/10ML AND 200MG/40 ML SINGLE USE VI [Concomitant]
     Dosage: LIQUID INTRAVENOUS
  5. ALLOPURINOL. [Suspect]
     Active Substance: ALLOPURINOL
     Indication: GOUT
     Route: 048
  6. LEVOTHYROXINE. [Concomitant]
     Active Substance: LEVOTHYROXINE
  7. SALBUTAMOL [Suspect]
     Active Substance: ALBUTEROL
     Route: 065
  8. NIVOLUMAB BMS [Concomitant]
     Active Substance: NIVOLUMAB
  9. RABEPRAZOLE [Concomitant]
     Active Substance: RABEPRAZOLE
  10. BUPROPION SR [Concomitant]
     Active Substance: BUPROPION HYDROCHLORIDE
  11. COLCHICINE. [Concomitant]
     Active Substance: COLCHICINE
  12. HYDROCHLOROTHIAZIDE. [Concomitant]
     Active Substance: HYDROCHLOROTHIAZIDE

REACTIONS (6)
  - Rash erythematous [Recovering/Resolving]
  - Ocular hyperaemia [Recovering/Resolving]
  - Malaise [Recovering/Resolving]
  - Rash pruritic [Recovering/Resolving]
  - Pyrexia [Recovering/Resolving]
  - Rash maculo-papular [Recovering/Resolving]
